FAERS Safety Report 21653229 (Version 4)
Quarter: 2023Q1

REPORT INFORMATION
  Report Type: Report from Study
  Country: HU (occurrence: HU)
  Receive Date: 20221128
  Receipt Date: 20230117
  Transmission Date: 20230417
  Serious: Yes (Hospitalization, Other)
  Sender: FDA-Public Use
  Company Number: HU-CELLTRION INC.-2022HU019796

PATIENT

DRUGS (22)
  1. RITUXIMAB [Suspect]
     Active Substance: RITUXIMAB
     Indication: Marginal zone lymphoma
     Dosage: 375 MILLIGRAM/SQ. METER (840 MG) (DAYS 1, 8, 15 AND 22 OF CYCLE 1 THEN DAY 1 OF CYCLES 2 TO 5)
     Route: 042
     Dates: start: 20211216, end: 20220311
  2. RITUXIMAB [Suspect]
     Active Substance: RITUXIMAB
     Indication: Marginal zone lymphoma refractory
  3. RITUXIMAB [Suspect]
     Active Substance: RITUXIMAB
     Indication: Marginal zone lymphoma refractory
     Dosage: 375 MG/M2, ON DAYS 1, 8,15 AND 22 OF CYCLE 1 AND ON DAY 1 OF CYCLES 2 TO 5 (ON 11/MAR/2022, RECEIVED
     Route: 048
     Dates: start: 20211216
  4. TAFASITAMAB [Suspect]
     Active Substance: TAFASITAMAB
     Indication: Marginal zone lymphoma
     Dosage: BLINDED, INFORMATION WITHHELD, ON DAYS 1, 8, 15 AND 22 OF CYCLES 1 TO 3 AND ON DAYS 1 AND 15 (EVERY
     Route: 042
     Dates: start: 20211216, end: 20220413
  5. TAFASITAMAB [Suspect]
     Active Substance: TAFASITAMAB
     Indication: Marginal zone lymphoma refractory
     Dosage: BLINDED, INFORMATION WITHHELD
     Route: 042
     Dates: start: 20220922
  6. TAFASITAMAB [Suspect]
     Active Substance: TAFASITAMAB
     Dosage: BLINDED, INFORMATION WITHHELD
     Route: 042
     Dates: start: 20220714, end: 20220728
  7. TAFASITAMAB [Suspect]
     Active Substance: TAFASITAMAB
     Dosage: BLINDED, INFORMATION WITHHELD
     Route: 042
     Dates: start: 20220602, end: 20220616
  8. LENALIDOMIDE [Suspect]
     Active Substance: LENALIDOMIDE
     Indication: Marginal zone lymphoma
     Dosage: 20 MILLIGRAM DAILY (DAYS 1 TO 21 OF EACH 28-DAY CYCLE FOR CYCLES 1 TO 12)
     Route: 048
     Dates: start: 20211216, end: 20220209
  9. LENALIDOMIDE [Suspect]
     Active Substance: LENALIDOMIDE
     Indication: Marginal zone lymphoma refractory
     Dosage: 15 MILLIGRAM DAILY (DAYS 1 TO 21 OF EACH 28-DAY CYCLE FOR CYCLES 1 TO 12)
     Route: 048
     Dates: start: 20220210, end: 20220407
  10. LENALIDOMIDE [Suspect]
     Active Substance: LENALIDOMIDE
     Dosage: 15 MILLIGRAM DAILY (DAYS 1 TO 21 OF EACH 28-DAY CYCLE FOR CYCLES 1 TO 12)
     Route: 048
     Dates: start: 20220602, end: 20220617
  11. LENALIDOMIDE [Suspect]
     Active Substance: LENALIDOMIDE
     Dosage: 15 MILLIGRAM DAILY (DAYS 1 TO 21 OF EACH 28-DAY CYCLE FOR CYCLES 1 TO 12) STOP DATE: 07-APR-2022 00:
     Route: 048
     Dates: start: 20220922
  12. LENALIDOMIDE [Suspect]
     Active Substance: LENALIDOMIDE
     Indication: Marginal zone lymphoma refractory
     Dosage: ON DAYS 1 TO 21 OF EACH CYCLE FOR CYCLES 1 TO 12
     Route: 042
  13. SOLU-MEDROL [Concomitant]
     Active Substance: METHYLPREDNISOLONE SODIUM SUCCINATE
     Dosage: UNK
     Dates: start: 20211216
  14. ACYCLOVIR [Concomitant]
     Active Substance: ACYCLOVIR
     Dosage: UNK
     Dates: start: 20211216
  15. SULFAMETHOXAZOLE\TRIMETHOPRIM [Concomitant]
     Active Substance: SULFAMETHOXAZOLE\TRIMETHOPRIM
     Dosage: UNK
     Dates: start: 20220520, end: 20220529
  16. METFORMIN [Concomitant]
     Active Substance: METFORMIN HYDROCHLORIDE
     Dosage: UNK
     Dates: start: 20220602
  17. COMIRNATY [Concomitant]
     Active Substance: TOZINAMERAN
     Dosage: UNK
     Dates: start: 20210303, end: 20211118
  18. FUROSEMIDE [Concomitant]
     Active Substance: FUROSEMIDE
     Dosage: UNK
     Dates: start: 2015
  19. ALPRAZOLAM [Concomitant]
     Active Substance: ALPRAZOLAM
     Dosage: UNK
     Dates: start: 2019
  20. ALLOPURINOL [Concomitant]
     Active Substance: ALLOPURINOL
     Dosage: UNK
     Dates: start: 201910
  21. ACETAMINOPHEN [Concomitant]
     Active Substance: ACETAMINOPHEN
     Dosage: UNK
     Dates: start: 20211216
  22. CETIRIZINE [Concomitant]
     Active Substance: CETIRIZINE HYDROCHLORIDE
     Dosage: UNK
     Dates: start: 20211216

REACTIONS (7)
  - COVID-19 pneumonia [Recovered/Resolved with Sequelae]
  - Hypogammaglobulinaemia [Recovered/Resolved]
  - C-reactive protein increased [Not Recovered/Not Resolved]
  - Anaemia [Unknown]
  - Escherichia infection [Recovering/Resolving]
  - Candida infection [Recovering/Resolving]
  - Off label use [Unknown]

NARRATIVE: CASE EVENT DATE: 20220623
